FAERS Safety Report 20939429 (Version 1)
Quarter: 2022Q2

REPORT INFORMATION
  Report Type: Spontaneous
  Country: US (occurrence: None)
  Receive Date: 20220608
  Receipt Date: 20220608
  Transmission Date: 20220721
  Serious: No
  Sender: FDA-Public Use
  Company Number: None

PATIENT
  Age: 70 Year
  Sex: Female
  Weight: 56.47 kg

DRUGS (9)
  1. LENALIDOMIDE [Suspect]
     Active Substance: LENALIDOMIDE
     Indication: Plasma cell myeloma
     Dosage: FREQUENCY : DAILY;?
     Route: 048
     Dates: start: 202104
  2. VITAMIN C ER [Concomitant]
  3. VITAMIN E BLEND [Concomitant]
  4. ASPIRIN 81 [Concomitant]
  5. MOTHER BRAGGS VINEGAR [Concomitant]
  6. VITAMIN D3 ADULT GUMMIES [Concomitant]
  7. PROCHLORPERAZINE MALEATE [Concomitant]
  8. ASTRAGULUS [Concomitant]
  9. ATOVAQUONE [Concomitant]

REACTIONS (2)
  - Neutropenia [None]
  - Therapy interrupted [None]
